FAERS Safety Report 10061324 (Version 2)
Quarter: 2014Q2

REPORT INFORMATION
  Report Type: Report from Study
  Country: US (occurrence: US)
  Receive Date: 20140407
  Receipt Date: 20140407
  Transmission Date: 20141212
  Serious: Yes (Death)
  Sender: FDA-Public Use
  Company Number: US-ROCHE-1279098

PATIENT
  Age: 59 Year
  Sex: Male
  Weight: 113.5 kg

DRUGS (4)
  1. AVASTIN [Suspect]
     Indication: COLORECTAL CANCER
     Route: 042
     Dates: start: 20130201, end: 20131216
  2. VITAMIN B6 [Concomitant]
  3. FLUOROURACIL [Concomitant]
     Indication: COLON CANCER
     Route: 042
     Dates: start: 201302
  4. OXALIPLATIN [Concomitant]
     Indication: COLON CANCER
     Route: 042
     Dates: start: 201302

REACTIONS (7)
  - Death [Fatal]
  - Paraesthesia [Not Recovered/Not Resolved]
  - Neuropathy peripheral [Not Recovered/Not Resolved]
  - Constipation [Not Recovered/Not Resolved]
  - Neoplasm [Not Recovered/Not Resolved]
  - White blood cell count decreased [Unknown]
  - Fluid retention [Recovering/Resolving]
